FAERS Safety Report 4686058-3 (Version None)
Quarter: 2005Q2

REPORT INFORMATION
  Report Type: 
  Country: None (occurrence: None)
  Receive Date: 20050609
  Receipt Date: 20050514
  Transmission Date: 20051028
  Serious: Yes (Hospitalization)
  Sender: FDA-Public Use
  Company Number: JP-BRISTOL-MYERS SQUIBB COMPANY-12977989

PATIENT
  Age: 21 Year
  Sex: Male

DRUGS (2)
  1. GATIFLO TABS 100 MG [Suspect]
     Indication: URETHRITIS
     Route: 048
     Dates: start: 20050511, end: 20050512
  2. SOLANTAL [Concomitant]
     Route: 048
     Dates: start: 20050511, end: 20050512

REACTIONS (1)
  - OCULOMUCOCUTANEOUS SYNDROME [None]
